FAERS Safety Report 6245723-7 (Version None)
Quarter: 2009Q2

REPORT INFORMATION
  Report Type: 
  Country: None (occurrence: None)
  Receive Date: 20090625
  Receipt Date: 20090622
  Transmission Date: 20091009
  Serious: Yes (Hospitalization)
  Sender: FDA-Public Use
  Company Number: US-GENENTECH-283336

PATIENT
  Sex: Female
  Weight: 73 kg

DRUGS (5)
  1. AVASTIN [Suspect]
     Indication: BREAST CANCER METASTATIC
     Dosage: 10 MG/KG, Q2W
     Route: 042
     Dates: start: 20080403
  2. LAMICTAL [Concomitant]
     Indication: DRUG USE FOR UNKNOWN INDICATION
     Dosage: 100 MG, QHS
     Dates: start: 20090114, end: 20090504
  3. GEMCITABINE [Concomitant]
     Indication: DRUG USE FOR UNKNOWN INDICATION
     Dosage: 1000 MG/M2, UNK
     Dates: start: 20090107, end: 20090425
  4. LYRICA [Concomitant]
     Indication: DRUG USE FOR UNKNOWN INDICATION
     Dosage: 75 MG, BID
     Dates: start: 20090114
  5. LEXAPRO [Concomitant]
     Indication: DRUG USE FOR UNKNOWN INDICATION
     Dosage: 5 MG, QD
     Route: 048
     Dates: start: 20090114, end: 20090504

REACTIONS (3)
  - CONVULSION [None]
  - MENTAL STATUS CHANGES [None]
  - PHOTOPHOBIA [None]
